FAERS Safety Report 11499502 (Version 6)
Quarter: 2018Q2

REPORT INFORMATION
  Report Type: Spontaneous
  Country: IE (occurrence: IE)
  Receive Date: 20150914
  Receipt Date: 20180503
  Transmission Date: 20180711
  Serious: Yes (Hospitalization, Other)
  Sender: FDA-Public Use
  Company Number: IE-AUROBINDO-AUR-APL-2015-07340

PATIENT
  Age: 60 Year
  Sex: Male

DRUGS (38)
  1. COLCHICINE. [Interacting]
     Active Substance: COLCHICINE
     Indication: GOUT
     Dosage: 0.5 MG, 3 TIMES A DAY
     Route: 065
  2. VALSARTAN. [Concomitant]
     Active Substance: VALSARTAN
     Dosage: ()
  3. LISINOPRIL. [Concomitant]
     Active Substance: LISINOPRIL
     Dosage: ()
  4. BISOPROLOL [Concomitant]
     Active Substance: BISOPROLOL
     Dosage: ()
  5. SIMVASTATIN. [Interacting]
     Active Substance: SIMVASTATIN
     Dosage: ()
     Route: 048
  6. COLCHICINE. [Interacting]
     Active Substance: COLCHICINE
  7. FUROSEMIDE. [Concomitant]
     Active Substance: FUROSEMIDE
     Dosage: ()
  8. SIMVASTATIN. [Suspect]
     Active Substance: SIMVASTATIN
     Indication: PRODUCT USED FOR UNKNOWN INDICATION
     Route: 065
  9. SIMVASTATIN. [Interacting]
     Active Substance: SIMVASTATIN
     Dosage: ()
  10. COLCHICINE. [Interacting]
     Active Substance: COLCHICINE
     Indication: GOUT
  11. LISINOPRIL. [Concomitant]
     Active Substance: LISINOPRIL
     Dosage: ()
  12. FRUSEMIDE                          /00032601/ [Concomitant]
     Active Substance: FUROSEMIDE
     Indication: PRODUCT USED FOR UNKNOWN INDICATION
     Route: 065
  13. AMLODIPINE [Concomitant]
     Active Substance: AMLODIPINE BESYLATE
     Dosage: ()
  14. BISOPROLOL [Concomitant]
     Active Substance: BISOPROLOL
     Indication: PRODUCT USED FOR UNKNOWN INDICATION
     Route: 065
  15. COLCHICINE. [Interacting]
     Active Substance: COLCHICINE
     Dosage: 0.5 MG, QD
  16. ACETYLSALICYLIC ACID [Concomitant]
     Active Substance: ASPIRIN
     Dosage: ()
  17. VALSARTAN. [Concomitant]
     Active Substance: VALSARTAN
     Dosage: ()
  18. AMLODIPINE [Concomitant]
     Active Substance: AMLODIPINE BESYLATE
     Indication: PRODUCT USED FOR UNKNOWN INDICATION
     Route: 065
  19. ALFACALCIDOL [Concomitant]
     Active Substance: ALFACALCIDOL
     Dosage: ()
  20. ACETYLSALICYLIC ACID [Concomitant]
     Active Substance: ASPIRIN
     Dosage: ()
  21. GLICLAZIDE [Concomitant]
     Active Substance: GLICLAZIDE
     Indication: PRODUCT USED FOR UNKNOWN INDICATION
     Route: 065
  22. GLICLAZIDE [Concomitant]
     Active Substance: GLICLAZIDE
     Dosage: ()
  23. AMLODIPINE [Concomitant]
     Active Substance: AMLODIPINE BESYLATE
     Dosage: ()
  24. BISOPROLOL [Concomitant]
     Active Substance: BISOPROLOL
     Dosage: ()
  25. BISOPROLOL [Concomitant]
     Active Substance: BISOPROLOL
     Dosage: ()
  26. ALFACALCIDOL [Concomitant]
     Active Substance: ALFACALCIDOL
     Indication: PRODUCT USED FOR UNKNOWN INDICATION
     Route: 065
  27. GLICLAZIDE [Concomitant]
     Active Substance: GLICLAZIDE
     Dosage: ()
  28. VALSARTAN. [Concomitant]
     Active Substance: VALSARTAN
     Indication: PRODUCT USED FOR UNKNOWN INDICATION
     Route: 065
  29. LISINOPRIL. [Concomitant]
     Active Substance: LISINOPRIL
     Indication: PRODUCT USED FOR UNKNOWN INDICATION
     Route: 065
  30. ASPIRIN. [Concomitant]
     Active Substance: ASPIRIN
     Indication: PRODUCT USED FOR UNKNOWN INDICATION
     Route: 065
  31. AMLODIPINE [Concomitant]
     Active Substance: AMLODIPINE BESYLATE
     Dosage: ()
  32. ALFACALCIDOL [Concomitant]
     Active Substance: ALFACALCIDOL
     Dosage: ()
  33. SIMVASTATIN. [Interacting]
     Active Substance: SIMVASTATIN
     Dosage: ()
  34. GLICLAZIDE [Concomitant]
     Active Substance: GLICLAZIDE
     Dosage: ()
  35. VALSARTAN. [Concomitant]
     Active Substance: VALSARTAN
     Dosage: ()
  36. LISINOPRIL. [Concomitant]
     Active Substance: LISINOPRIL
     Dosage: ()
  37. ALFACALCIDOL [Concomitant]
     Active Substance: ALFACALCIDOL
     Dosage: ()
  38. FUROSEMIDE. [Concomitant]
     Active Substance: FUROSEMIDE
     Dosage: ()

REACTIONS (23)
  - Axonal neuropathy [Recovered/Resolved]
  - Muscular weakness [Recovered/Resolved]
  - Fall [Recovered/Resolved]
  - Diarrhoea [Recovered/Resolved]
  - Labelled drug-drug interaction medication error [Recovered/Resolved]
  - Platelet count decreased [Recovered/Resolved]
  - Blood creatine phosphokinase increased [Recovered/Resolved]
  - C-reactive protein increased [Recovered/Resolved]
  - Drug interaction [Recovered/Resolved]
  - Blood potassium increased [Recovered/Resolved]
  - Acute kidney injury [Recovered/Resolved]
  - Anuria [Recovered/Resolved]
  - Decreased appetite [Recovered/Resolved]
  - Blood uric acid increased [Recovered/Resolved]
  - Neuromyopathy [Recovered/Resolved]
  - Myopathy [Recovered/Resolved]
  - Blood urea increased [Recovered/Resolved]
  - Alanine aminotransferase increased [Recovered/Resolved]
  - Toxicity to various agents [Recovered/Resolved]
  - Blood alkaline phosphatase increased [Recovered/Resolved]
  - Blood creatinine increased [Recovered/Resolved]
  - Gamma-glutamyltransferase increased [Recovered/Resolved]
  - Haemoglobin decreased [Recovered/Resolved]
